FAERS Safety Report 10378513 (Version 3)
Quarter: 2014Q3

REPORT INFORMATION
  Report Type: Spontaneous
  Country: US (occurrence: None)
  Receive Date: 20140807
  Receipt Date: 20140909
  Transmission Date: 20150326
  Serious: Yes (Other)
  Sender: FDA-Public Use
  Company Number: 2014-US-009450

PATIENT
  Age: 60 Year
  Sex: Female

DRUGS (1)
  1. XYREM [Suspect]
     Active Substance: SODIUM OXYBATE
     Indication: NARCOLEPSY
     Route: 048
     Dates: start: 201305, end: 201305

REACTIONS (9)
  - Wrist fracture [None]
  - Influenza [None]
  - Balance disorder [None]
  - Fracture displacement [None]
  - Dehydration [None]
  - Fall [None]
  - Comminuted fracture [None]
  - Dizziness [None]
  - Middle insomnia [None]

NARRATIVE: CASE EVENT DATE: 201407
